FAERS Safety Report 6422051-8 (Version None)
Quarter: 2009Q4

REPORT INFORMATION
  Report Type: 
  Country: None (occurrence: None)
  Receive Date: 20091029
  Receipt Date: 20091029
  Transmission Date: 20100525
  Serious: No
  Sender: FDA-Public Use
  Company Number: None

PATIENT
  Age: 78 Year
  Sex: Male

DRUGS (2)
  1. HALOPERIDOL [Suspect]
     Indication: AGITATION
     Dosage: 5 MG PRN IV
     Route: 042
     Dates: start: 20090901, end: 20090902
  2. HALOPERIDOL [Suspect]
     Indication: DELIRIUM
     Dosage: 5 MG PRN IV
     Route: 042
     Dates: start: 20090901, end: 20090902

REACTIONS (1)
  - NO THERAPEUTIC RESPONSE [None]
